FAERS Safety Report 7047466-9 (Version None)
Quarter: 2010Q4

REPORT INFORMATION
  Report Type: 
  Country: None (occurrence: None)
  Receive Date: 20101015
  Receipt Date: 20101004
  Transmission Date: 20110411
  Serious: Yes (Other)
  Sender: FDA-Public Use
  Company Number: DE-WATSON-2010-13483

PATIENT
  Age: 50 Year
  Sex: Female

DRUGS (1)
  1. PREDNISOLONE ACETATE [Suspect]
     Indication: PROPHYLAXIS AGAINST TRANSPLANT REJECTION
     Dosage: 10 MG, DAILY
     Dates: start: 20060101

REACTIONS (2)
  - ERYSIPELAS [None]
  - OSTEONECROSIS [None]
